FAERS Safety Report 9012946 (Version 5)
Quarter: 2014Q4

REPORT INFORMATION
  Report Type: Spontaneous
  Country: US (occurrence: US)
  Receive Date: 20130114
  Receipt Date: 20141203
  Transmission Date: 20150529
  Serious: Yes (Hospitalization, Other)
  Sender: FDA-Public Use
  Company Number: US-GLAXOSMITHKLINE-A1008197A

PATIENT
  Age: 52 Year
  Sex: Female

DRUGS (5)
  1. WARFARIN [Concomitant]
     Active Substance: WARFARIN
  2. FLOLAN [Suspect]
     Active Substance: EPOPROSTENOL SODIUM
     Indication: COR PULMONALE CHRONIC
     Dosage: 1.5 MG VIAL STRENGTH, 60,000 NG/ML AT UNKNOWN RATE FOR 57 NG/KG/MINUTE CONTINUOUSLY
     Route: 042
     Dates: start: 20060209
  3. FLOLAN [Suspect]
     Active Substance: EPOPROSTENOL SODIUM
     Dosage: DOSE: 57 NG/KG/MIN; CONCENTRATION: 60,000 NG/ML; PUMP RATE: 90 ML/DAY; VIAL STRENGTH: 1.5 MG
     Dates: start: 20051229
  4. OXYGEN. [Suspect]
     Active Substance: OXYGEN
     Indication: PRODUCT USED FOR UNKNOWN INDICATION
     Dosage: 2 LITERS, UNK
     Route: 065
  5. FLOLAN [Suspect]
     Active Substance: EPOPROSTENOL SODIUM
     Dosage: UNK
     Dates: start: 20060209

REACTIONS (7)
  - Mental status changes [Unknown]
  - Urinary tract infection [Unknown]
  - Hospitalisation [Unknown]
  - Confusional state [Unknown]
  - Medical device complication [Unknown]
  - Emergency care examination [Recovered/Resolved]
  - Dyspnoea [Unknown]

NARRATIVE: CASE EVENT DATE: 20141008
